FAERS Safety Report 7008124-X (Version None)
Quarter: 2010Q3

REPORT INFORMATION
  Report Type: 
  Country: None (occurrence: None)
  Receive Date: 20100922
  Receipt Date: 20100914
  Transmission Date: 20110219
  Serious: No
  Sender: FDA-Public Use
  Company Number: US-TEVA-244811USA

PATIENT
  Sex: Female

DRUGS (1)
  1. CLARAVIS [Suspect]
     Route: 048
     Dates: start: 20100514, end: 20100801

REACTIONS (2)
  - PREGNANCY TEST FALSE POSITIVE [None]
  - TREATMENT NONCOMPLIANCE [None]
